FAERS Safety Report 15569519 (Version 1)
Quarter: 2018Q4

REPORT INFORMATION
  Report Type: Spontaneous
  Country: IN (occurrence: IN)
  Receive Date: 20181031
  Receipt Date: 20181031
  Transmission Date: 20190205
  Serious: No
  Sender: FDA-Public Use
  Company Number: IN-LUPIN LIMITED-2018-03047

PATIENT
  Age: 25 Year
  Sex: Female

DRUGS (2)
  1. NITROBEST FIL.C.TAB.SR 100 MG [Suspect]
     Active Substance: NITROFURANTOIN
     Indication: PRODUCT USED FOR UNKNOWN INDICATION
     Dosage: UNK
     Route: 065
  2. NITROBEST FIL.C.TAB.SR 100 MG [Suspect]
     Active Substance: NITROFURANTOIN
     Dosage: UNK
     Route: 065

REACTIONS (2)
  - Papule [Unknown]
  - Pruritus [Unknown]
